FAERS Safety Report 20638766 (Version 2)
Quarter: 2022Q2

REPORT INFORMATION
  Report Type: Spontaneous
  Country: FR (occurrence: FR)
  Receive Date: 20220325
  Receipt Date: 20220406
  Transmission Date: 20220720
  Serious: Yes (Death, Other)
  Sender: FDA-Public Use
  Company Number: FR-INCYTE CORPORATION-2022IN002827

PATIENT

DRUGS (1)
  1. TAFASITAMAB [Suspect]
     Active Substance: TAFASITAMAB
     Indication: Diffuse large B-cell lymphoma
     Dosage: 600 MILLIGRAM PER DOSE (50 KG)
     Route: 065
     Dates: start: 20211119, end: 202111

REACTIONS (1)
  - Lymphoma [Fatal]

NARRATIVE: CASE EVENT DATE: 20211124
